FAERS Safety Report 8504227-9 (Version None)
Quarter: 2012Q3

REPORT INFORMATION
  Report Type: 
  Country: None (occurrence: None)
  Receive Date: 20120711
  Receipt Date: 20120704
  Transmission Date: 20120928
  Serious: Yes (Other)
  Sender: FDA-Public Use
  Company Number: IT-BAXTER-2011BH032281

PATIENT
  Sex: Female

DRUGS (7)
  1. DECADRON [Concomitant]
     Route: 065
  2. CYCLOPHOSPHAMIDE [Suspect]
     Indication: BREAST CANCER
     Route: 042
     Dates: start: 20110608, end: 20110727
  3. KYTRIL [Concomitant]
     Route: 065
  4. ESTRONE W/PROGESTERONE [Concomitant]
     Route: 065
  5. FLUOROURACIL [Suspect]
     Indication: BREAST CANCER
     Route: 042
     Dates: start: 20110608, end: 20110727
  6. EPIRUBICIN HYDROCHLORIDE [Suspect]
     Indication: BREAST CANCER
     Route: 042
     Dates: start: 20110608, end: 20110727
  7. RAMIPRIL [Concomitant]
     Route: 065

REACTIONS (4)
  - NAUSEA [None]
  - ALOPECIA [None]
  - VOMITING [None]
  - HYPERTRANSAMINASAEMIA [None]
